FAERS Safety Report 7463606-1 (Version None)
Quarter: 2011Q2

REPORT INFORMATION
  Report Type: 
  Country: None (occurrence: None)
  Receive Date: 20110506
  Receipt Date: 20110504
  Transmission Date: 20111010
  Serious: Yes (Hospitalization)
  Sender: FDA-Public Use
  Company Number: AU-ABBOTT-11P-008-0723506-00

PATIENT
  Sex: Male

DRUGS (2)
  1. HUMIRA [Suspect]
     Indication: PSORIASIS
     Route: 058
  2. PANTOPRAZOLE [Concomitant]
     Indication: OESOPHAGEAL DISORDER

REACTIONS (4)
  - PNEUMONIA [None]
  - CHILLS [None]
  - LETHARGY [None]
  - C-REACTIVE PROTEIN INCREASED [None]
